FAERS Safety Report 20985561 (Version 2)
Quarter: 2022Q2

REPORT INFORMATION
  Report Type: Report from Study
  Country: US (occurrence: US)
  Receive Date: 20220621
  Receipt Date: 20220624
  Transmission Date: 20220720
  Serious: Yes (Hospitalization)
  Sender: FDA-Public Use
  Company Number: US-TAKEDA-2022TUS039935

PATIENT
  Age: 11 Year
  Sex: Female
  Weight: 29.1 kg

DRUGS (18)
  1. TEDUGLUTIDE [Suspect]
     Active Substance: TEDUGLUTIDE
     Indication: Short-bowel syndrome
     Dosage: 999 MILLIGRAM, QD
     Route: 042
     Dates: start: 20191101, end: 20200206
  2. TEDUGLUTIDE [Suspect]
     Active Substance: TEDUGLUTIDE
     Indication: Short-bowel syndrome
     Dosage: 999 MILLIGRAM, QD
     Route: 042
     Dates: start: 20191101, end: 20200206
  3. TEDUGLUTIDE [Suspect]
     Active Substance: TEDUGLUTIDE
     Indication: Short-bowel syndrome
     Dosage: 999 MILLIGRAM, QD
     Route: 042
     Dates: start: 20191101, end: 20200206
  4. TEDUGLUTIDE [Suspect]
     Active Substance: TEDUGLUTIDE
     Indication: Short-bowel syndrome
     Dosage: 999 MILLIGRAM, QD
     Route: 042
     Dates: start: 20191101, end: 20200206
  5. TEDUGLUTIDE [Suspect]
     Active Substance: TEDUGLUTIDE
     Dosage: 1.1 MILLIGRAM, QD
     Route: 042
     Dates: start: 20200207, end: 20201119
  6. TEDUGLUTIDE [Suspect]
     Active Substance: TEDUGLUTIDE
     Dosage: 1.1 MILLIGRAM, QD
     Route: 042
     Dates: start: 20200207, end: 20201119
  7. TEDUGLUTIDE [Suspect]
     Active Substance: TEDUGLUTIDE
     Dosage: 1.1 MILLIGRAM, QD
     Route: 042
     Dates: start: 20200207, end: 20201119
  8. TEDUGLUTIDE [Suspect]
     Active Substance: TEDUGLUTIDE
     Dosage: 1.1 MILLIGRAM, QD
     Route: 042
     Dates: start: 20200207, end: 20201119
  9. CETIRIZINE [Concomitant]
     Active Substance: CETIRIZINE HYDROCHLORIDE
     Indication: Multiple allergies
     Dosage: 5 MILLIGRAM, QD
     Route: 048
     Dates: start: 20220505, end: 20220512
  10. CETIRIZINE [Concomitant]
     Active Substance: CETIRIZINE HYDROCHLORIDE
     Dosage: 1 MILLIGRAM/KILOGRAM, QD
     Route: 048
     Dates: start: 2019
  11. FAMOTIDINE [Concomitant]
     Active Substance: FAMOTIDINE
     Indication: Parenteral nutrition
     Dosage: 20 MILLIGRAM, BID
     Route: 048
     Dates: start: 20220504, end: 20220507
  12. CIPROFLOXACIN [Concomitant]
     Active Substance: CIPROFLOXACIN
     Indication: Abdominal infection
     Dosage: 225 MILLIGRAM, BID
     Route: 048
     Dates: start: 20220504, end: 20220512
  13. CIPROFLOXACIN [Concomitant]
     Active Substance: CIPROFLOXACIN
     Indication: Small intestinal obstruction
     Dosage: 4.5 MILLILITER
     Route: 048
     Dates: start: 20210103
  14. CIPROFLOXACIN [Concomitant]
     Active Substance: CIPROFLOXACIN
     Indication: Prophylaxis
  15. LOPERAMIDE [Concomitant]
     Active Substance: LOPERAMIDE
     Indication: Gastrointestinal stoma output increased
     Dosage: 2 MILLIGRAM, BID
     Route: 048
     Dates: start: 20220505, end: 20220512
  16. ESOMEPRAZOLE [Concomitant]
     Active Substance: ESOMEPRAZOLE
     Indication: Gastrooesophageal reflux disease
     Dosage: 10 MILLIGRAM, QD
     Route: 048
     Dates: start: 20220505, end: 20220512
  17. FLONASE [Concomitant]
     Active Substance: FLUTICASONE PROPIONATE
     Indication: Multiple allergies
     Dosage: 50 MICROGRAM, BID
     Route: 050
     Dates: start: 20210528
  18. BACTRIM [Concomitant]
     Active Substance: SULFAMETHOXAZOLE\TRIMETHOPRIM
     Indication: Overgrowth bacterial
     Dosage: 8.40 MILLILITER, BID
     Route: 048
     Dates: start: 20220102

REACTIONS (1)
  - Hypernatraemia [Recovered/Resolved]

NARRATIVE: CASE EVENT DATE: 20220504
